FAERS Safety Report 11758533 (Version 1)
Quarter: 2015Q4

REPORT INFORMATION
  Report Type: Spontaneous
  Country: US (occurrence: None)
  Receive Date: 20151118
  Receipt Date: 20151118
  Transmission Date: 20160304
  Serious: Yes (Hospitalization)
  Sender: FDA-Public Use
  Company Number: None

PATIENT
  Age: 13 Year
  Sex: Female
  Weight: 58.97 kg

DRUGS (3)
  1. ABILIFY [Concomitant]
     Active Substance: ARIPIPRAZOLE
  2. LORAZEPAM. [Suspect]
     Active Substance: LORAZEPAM
  3. ZOLOFT [Suspect]
     Active Substance: SERTRALINE HYDROCHLORIDE
     Indication: ANXIETY
     Dosage: 50MG TWO DOSES TAKEN BY MOUTH
     Route: 048
     Dates: start: 20150312, end: 20150324

REACTIONS (8)
  - Headache [None]
  - Asthenia [None]
  - Pruritus [None]
  - Paraesthesia [None]
  - Suicidal ideation [None]
  - Drug withdrawal syndrome [None]
  - Dry mouth [None]
  - Suicidal behaviour [None]

NARRATIVE: CASE EVENT DATE: 20150324
